FAERS Safety Report 6887756-3 (Version None)
Quarter: 2010Q3

REPORT INFORMATION
  Report Type: 
  Country: None (occurrence: None)
  Receive Date: 20100726
  Receipt Date: 20100716
  Transmission Date: 20110219
  Serious: No
  Sender: FDA-Public Use
  Company Number: 200409016

PATIENT
  Sex: Female

DRUGS (1)
  1. BERINERT [Suspect]
     Dosage: 500 IU, DAILY DOSE QUANTITY: 500, DAILY DOSE UNIT: IU
     Dates: start: 20030124

REACTIONS (1)
  - HEPATITIS B [None]
